FAERS Safety Report 5491480-1 (Version None)
Quarter: 2007Q4

REPORT INFORMATION
  Report Type: 
  Country: None (occurrence: None)
  Receive Date: 20071022
  Receipt Date: 20071008
  Transmission Date: 20080405
  Serious: Yes (Hospitalization, Disabling)
  Sender: FDA-Public Use
  Company Number: PHEH2007US04306

PATIENT
  Age: 51 Year
  Sex: Female

DRUGS (25)
  1. ZELNORM [Suspect]
     Indication: IRRITABLE BOWEL SYNDROME
     Dosage: 6 MG, BID
     Route: 048
     Dates: start: 20040101, end: 20070404
  2. NYSTATIN [Concomitant]
     Dosage: 500000 U, TID
     Route: 048
  3. ALPRAZOLAM [Concomitant]
     Dosage: 0.5 MG, BID
     Route: 048
  4. TERCONAZOLE [Concomitant]
     Dosage: 0.8 %, QHS
     Route: 067
  5. OMEPRAZOLE [Concomitant]
     Dosage: 20 MG, BID
     Route: 048
  6. HYOSCYAMINE [Concomitant]
     Dosage: 0.125 MG, UNK (1 OR 2 TABS)
     Route: 060
  7. MORPHINE SULFATE [Concomitant]
     Dosage: 15 MG, UNK
     Route: 048
  8. ROXICODONE [Concomitant]
     Dosage: 10 MG, Q6H, PRN
     Route: 048
  9. MEDROXYPROGESTERONE [Concomitant]
     Dosage: 10 MG, UNK
     Route: 048
  10. TRIMOX [Concomitant]
     Dosage: 500 MG, UNK
     Route: 048
  11. NORTRIPTYLINE HCL [Concomitant]
     Dosage: 25 MG, UNK
     Route: 048
  12. HYDROCORTISONE ACETATE [Concomitant]
     Dosage: 25 MG, UNK
     Route: 054
  13. DIFLUCAN [Concomitant]
     Dosage: 150 MG, UNK
     Route: 048
  14. DENAVIR [Concomitant]
     Dosage: 1 %, UNK
     Route: 061
  15. AVIANE-21 [Concomitant]
     Route: 048
  16. CYCLOBENZAPRINE HCL [Concomitant]
     Dosage: 10 MG, TID
     Route: 048
  17. OXYCODONE HCL [Concomitant]
     Dosage: 10 MG, Q6H
     Route: 048
  18. PHENAZOPYRIDINE HCL TAB [Concomitant]
     Dosage: 200 MG, TID
     Route: 048
  19. SYNTHROID [Concomitant]
     Dosage: 100 MEQ, QD
     Route: 048
  20. SYNTHROID [Concomitant]
     Dosage: 125 MEQ, QD
  21. PRILOSEC [Concomitant]
     Dosage: 20 MG, BID
     Route: 048
  22. CLONAZEPAM [Concomitant]
     Dosage: 1 MG, TID
     Route: 048
  23. DIAZEPAM [Concomitant]
     Dosage: 5 MG, PRN
  24. FLUCONAZOLE [Concomitant]
     Dosage: 150 MG, UNK
  25. PROCHLORPERAZINE [Concomitant]
     Dosage: 5 MG, Q6H
     Route: 048

REACTIONS (8)
  - CARCINOID TUMOUR PULMONARY [None]
  - CARDIAC FLUTTER [None]
  - DISABILITY [None]
  - HEART RATE INCREASED [None]
  - HEART RATE IRREGULAR [None]
  - LIMB DISCOMFORT [None]
  - LUNG LOBECTOMY [None]
  - LUNG NEOPLASM MALIGNANT [None]
